FAERS Safety Report 9890804 (Version 1)
Quarter: 2014Q1

REPORT INFORMATION
  Report Type: Spontaneous
  Country: AT (occurrence: None)
  Receive Date: 20140210
  Receipt Date: 20140210
  Transmission Date: 20141002
  Serious: Yes (Other)
  Sender: FDA-Public Use
  Company Number: 2014/004

PATIENT
  Age: 82 Year
  Sex: Female

DRUGS (2)
  1. GRANISETRON [Suspect]
     Indication: ANTIEMETIC SUPPORTIVE CARE
  2. 5-AZACYTIDINE [Suspect]
     Indication: MYELODYSPLASTIC SYNDROME

REACTIONS (9)
  - Colitis ischaemic [None]
  - Febrile neutropenia [None]
  - Thrombocytopenia [None]
  - Off label use [None]
  - No therapeutic response [None]
  - Anti-platelet antibody positive [None]
  - Refractoriness to platelet transfusion [None]
  - Blast cell crisis [None]
  - Acute myeloid leukaemia [None]
